FAERS Safety Report 6331688-6 (Version None)
Quarter: 2009Q3

REPORT INFORMATION
  Report Type: 
  Country: None (occurrence: None)
  Receive Date: 20090827
  Receipt Date: 20090818
  Transmission Date: 20100115
  Serious: Yes (Hospitalization, Other)
  Sender: FDA-Public Use
  Company Number: US-ROCHE-622883

PATIENT
  Sex: Female
  Weight: 86.6 kg

DRUGS (5)
  1. CAPECITABINE [Suspect]
     Dosage: FREQUENCY: BID X 14 DAYS THEN ONE WEEK OFF
     Route: 048
     Dates: start: 20080901, end: 20090701
  2. CALCIUM SUPPLEMENT [Concomitant]
     Route: 048
  3. MS CONTIN [Concomitant]
     Route: 048
  4. CIPRO [Concomitant]
     Route: 048
  5. DILAUDID [Concomitant]
     Indication: BREAKTHROUGH PAIN
     Dosage: FREQUENCY: 4-6 PRN
     Route: 048

REACTIONS (5)
  - BREAST CANCER METASTATIC [None]
  - DIARRHOEA [None]
  - MALIGNANT NEOPLASM PROGRESSION [None]
  - PAIN [None]
  - VIRAL INFECTION [None]
